FAERS Safety Report 15820427 (Version 2)
Quarter: 2021Q2

REPORT INFORMATION
  Report Type: Spontaneous
  Country: GB (occurrence: GB)
  Receive Date: 20190114
  Receipt Date: 20210422
  Transmission Date: 20210716
  Serious: Yes (Other)
  Sender: FDA-Public Use
  Company Number: GB-TEVA-2019-GB-997533

PATIENT
  Age: 34 Year
  Sex: Male

DRUGS (4)
  1. TESTOSTERONE PROPIONATE. [Suspect]
     Active Substance: TESTOSTERONE PROPIONATE
     Indication: DRUG ABUSE
     Dosage: OVER 12 WEEKS
     Route: 065
  2. TAMOXIFEN [Suspect]
     Active Substance: TAMOXIFEN
     Indication: DRUG ABUSE
     Route: 065
  3. TRENBOLONE ACETATE [Suspect]
     Active Substance: TRENBOLONE ACETATE
     Indication: DRUG ABUSE
     Dosage: OVER 12 WEEKS
     Route: 065
  4. CLOMIPHENE CITRATE. [Suspect]
     Active Substance: CLOMIPHENE CITRATE
     Indication: DRUG ABUSE
     Route: 065

REACTIONS (3)
  - Drug abuse [Unknown]
  - Left ventricular hypertrophy [Unknown]
  - Ischaemic stroke [Unknown]
